FAERS Safety Report 21904839 (Version 1)
Quarter: 2023Q1

REPORT INFORMATION
  Report Type: Spontaneous
  Country: US (occurrence: None)
  Receive Date: 20230124
  Receipt Date: 20230124
  Transmission Date: 20230417
  Serious: Yes (Hospitalization)
  Sender: FDA-Public Use
  Company Number: None

PATIENT
  Age: 45 Year
  Sex: Male
  Weight: 38.10 kg

DRUGS (1)
  1. ATORVASTATIN [Suspect]
     Active Substance: ATORVASTATIN
     Indication: Hyperlipidaemia
     Dates: start: 20211210, end: 20220503

REACTIONS (9)
  - Asthenia [None]
  - Visual impairment [None]
  - Speech disorder [None]
  - Alanine aminotransferase increased [None]
  - Aspartate aminotransferase increased [None]
  - Myositis [None]
  - Myalgia [None]
  - Hepatic enzyme increased [None]
  - Movement disorder [None]

NARRATIVE: CASE EVENT DATE: 20220508
